FAERS Safety Report 14611540 (Version 1)
Quarter: 2018Q1

REPORT INFORMATION
  Report Type: Spontaneous
  Country: US (occurrence: US)
  Receive Date: 20180308
  Receipt Date: 20180308
  Transmission Date: 20180509
  Serious: No
  Sender: FDA-Public Use
  Company Number: US-BEH-2018088557

PATIENT
  Sex: Female

DRUGS (19)
  1. HIZENTRA [Suspect]
     Active Substance: HUMAN IMMUNOGLOBULIN G
     Dosage: 10 G, TOT
     Route: 058
  2. DEXILANT [Concomitant]
     Active Substance: DEXLANSOPRAZOLE
  3. HIZENTRA [Suspect]
     Active Substance: HUMAN IMMUNOGLOBULIN G
     Indication: IMMUNODEFICIENCY COMMON VARIABLE
     Dosage: 10 G, QW
     Route: 058
     Dates: start: 201710
  4. METHOTREXATE. [Concomitant]
     Active Substance: METHOTREXATE
  5. PLAQUENIL                          /00072602/ [Concomitant]
     Active Substance: HYDROXYCHLOROQUINE DIPHOSPHATE
  6. VALIUM [Concomitant]
     Active Substance: DIAZEPAM
  7. REGLAN [Concomitant]
     Active Substance: METOCLOPRAMIDE HYDROCHLORIDE
     Dosage: 10 MG, UNK
     Route: 065
  8. DICLOFENAC SODIUM. [Concomitant]
     Active Substance: DICLOFENAC SODIUM
  9. FOLIC ACID. [Concomitant]
     Active Substance: FOLIC ACID
  10. SINGULAIR [Concomitant]
     Active Substance: MONTELUKAST SODIUM
  11. SEROQUEL [Concomitant]
     Active Substance: QUETIAPINE FUMARATE
  12. COLACE [Concomitant]
     Active Substance: DOCUSATE SODIUM
  13. ASPIRIN. [Concomitant]
     Active Substance: ASPIRIN
  14. COUMADIN [Concomitant]
     Active Substance: WARFARIN SODIUM
  15. LAMICTAL [Concomitant]
     Active Substance: LAMOTRIGINE
  16. SYNTHROID [Concomitant]
     Active Substance: LEVOTHYROXINE SODIUM
  17. ALBUTEROL SULFATE. [Concomitant]
     Active Substance: ALBUTEROL SULFATE
  18. AMITIZA [Concomitant]
     Active Substance: LUBIPROSTONE
  19. CARBINOXAMINE MALEATE. [Concomitant]
     Active Substance: CARBINOXAMINE MALEATE

REACTIONS (2)
  - Nasopharyngitis [Unknown]
  - Pain [Unknown]
